FAERS Safety Report 17907022 (Version 1)
Quarter: 2020Q2

REPORT INFORMATION
  Report Type: Spontaneous
  Country: US (occurrence: US)
  Receive Date: 20200617
  Receipt Date: 20200617
  Transmission Date: 20200714
  Serious: No
  Sender: FDA-Public Use
  Company Number: US-PFIZER INC-2020234465

PATIENT
  Age: 57 Year
  Sex: Male
  Weight: 132.45 kg

DRUGS (3)
  1. CELECOXIB. [Suspect]
     Active Substance: CELECOXIB
     Indication: ARTHRITIS
     Dosage: 200 MG, 1X/DAY
     Dates: start: 202001
  2. CELECOXIB. [Suspect]
     Active Substance: CELECOXIB
     Indication: SCIATICA
     Dosage: 200 MG, 2X/DAY
     Dates: start: 2020, end: 20200616
  3. MELOXICAM. [Concomitant]
     Active Substance: MELOXICAM
     Dosage: UNK

REACTIONS (2)
  - Off label use [Unknown]
  - Drug ineffective for unapproved indication [Unknown]

NARRATIVE: CASE EVENT DATE: 202001
